FAERS Safety Report 12652720 (Version 1)
Quarter: 2016Q3

REPORT INFORMATION
  Report Type: Report from Study
  Country: ES (occurrence: ES)
  Receive Date: 20160815
  Receipt Date: 20160815
  Transmission Date: 20161109
  Serious: Yes (Death, Life-Threatening, Hospitalization)
  Sender: FDA-Public Use
  Company Number: ES-CELGENEUS-ESP-2016062195

PATIENT
  Age: 79 Year
  Sex: Male
  Weight: 55 kg

DRUGS (33)
  1. METFORMIN [Concomitant]
     Active Substance: METFORMIN HYDROCHLORIDE
     Indication: DIABETES MELLITUS
     Dosage: .3 MILLIGRAM/MILLILITERS
     Route: 048
     Dates: start: 201510
  2. CALCIUM PANTOTHENATE [Concomitant]
     Active Substance: CALCIUM PANTOTHENATE
     Indication: ASTHENIA
     Dosage: 1 PILL
     Route: 048
     Dates: start: 20151210
  3. AAS [Concomitant]
     Active Substance: ASPIRIN
     Indication: THROMBOSIS PROPHYLAXIS
     Dosage: 3 MILLIGRAM
     Route: 048
     Dates: start: 201603
  4. AMOXICILLIN/CLAVULANIC ACID [Concomitant]
     Active Substance: AMOXICILLIN\CLAVULANIC ACID
     Indication: PLEURAL EFFUSION
     Dosage: 875/125 MG
     Route: 048
     Dates: start: 201603, end: 20160328
  5. CINITAPRIDE [Concomitant]
     Indication: CONSTIPATION
     Dosage: 1 DOSAGE FORMS
     Route: 048
     Dates: start: 20151228
  6. LACTULOSE. [Concomitant]
     Active Substance: LACTULOSE
     Indication: CONSTIPATION
     Dosage: 1 DOSAGE FORMS
     Route: 048
     Dates: start: 20151228
  7. ABRAXANE [Suspect]
     Active Substance: PACLITAXEL
     Indication: NON-SMALL CELL LUNG CANCER
     Route: 041
  8. BIMATOPROST. [Concomitant]
     Active Substance: BIMATOPROST
     Indication: GLAUCOMA
     Route: 047
     Dates: start: 201510
  9. PREDNISONE. [Concomitant]
     Active Substance: PREDNISONE
     Indication: PROPHYLAXIS
     Dosage: 2 MILLIGRAM
     Route: 048
     Dates: start: 20151022
  10. INSULIN [Concomitant]
     Active Substance: INSULIN NOS
     Indication: DIABETES MELLITUS
     Dosage: 1 DOSAGE FORMS
     Route: 058
     Dates: start: 201603
  11. BRIMONIDINE [Concomitant]
     Active Substance: BRIMONIDINE TARTRATE
     Indication: GLAUCOMA
     Dosage: 20 GRAM
     Route: 047
     Dates: start: 201603
  12. METAMIZOL [Concomitant]
     Active Substance: METAMIZOLE SODIUM
     Indication: PAIN
     Dosage: 30 MILLIGRAM
     Route: 048
     Dates: start: 201510
  13. CYANOCOBALAMIN. [Concomitant]
     Active Substance: CYANOCOBALAMIN
     Indication: ASTHENIA
     Dosage: 1 PILL
     Route: 048
     Dates: start: 20151210
  14. BRINZOLAMIDE [Concomitant]
     Active Substance: BRINZOLAMIDE
     Indication: GLAUCOMA
     Route: 047
     Dates: start: 201510
  15. DEXAMETHASONE. [Concomitant]
     Active Substance: DEXAMETHASONE
     Indication: PROPHYLAXIS
     Dosage: 1700 MILLIGRAM
     Route: 041
     Dates: start: 201510
  16. NICOTINAMIDE [Concomitant]
     Active Substance: NIACINAMIDE
     Indication: ASTHENIA
     Dosage: 1 PILL
     Route: 048
     Dates: start: 20151210
  17. RIBOFLAVIN [Concomitant]
     Active Substance: RIBOFLAVIN
     Indication: ASTHENIA
     Dosage: 1 PILL
     Route: 048
     Dates: start: 20151210
  18. SODIUM CITRATE. [Concomitant]
     Active Substance: SODIUM CITRATE
     Indication: CONSTIPATION
     Dosage: 1 DOSAGE FORMS
     Route: 054
     Dates: start: 20151228
  19. LORAZEPAM. [Concomitant]
     Active Substance: LORAZEPAM
     Indication: INSOMNIA
     Route: 048
     Dates: start: 201510
  20. MIANSERIN [Concomitant]
     Active Substance: MIANSERIN
     Indication: DEPRESSION
     Dosage: 10 MILLIGRAM/MILLILITERS
     Route: 048
     Dates: start: 201510
  21. METHYLPHENIDATE. [Concomitant]
     Active Substance: METHYLPHENIDATE
     Indication: ASTHENIA
     Dosage: 1700 MILLIGRAM
     Route: 048
     Dates: start: 20151210
  22. THIAMINE. [Concomitant]
     Active Substance: THIAMINE
     Indication: ASTHENIA
     Dosage: 1 PILL
     Route: 048
     Dates: start: 20151210
  23. COMBIPRASAL [Concomitant]
     Active Substance: ALBUTEROL SULFATE\IPRATROPIUM BROMIDE
     Indication: LUNG DISORDER
     Route: 048
     Dates: start: 201603
  24. ABRAXANE [Suspect]
     Active Substance: PACLITAXEL
     Route: 041
     Dates: start: 20160210, end: 20160217
  25. LANSOPRAZOLE. [Concomitant]
     Active Substance: LANSOPRAZOLE
     Indication: ABDOMINAL PAIN UPPER
     Route: 048
     Dates: start: 201510
  26. LEVEMIR [Concomitant]
     Active Substance: INSULIN DETEMIR
     Indication: TYPE 1 DIABETES MELLITUS
     Route: 058
     Dates: start: 201510
  27. METOCLOPRAMIDE. [Concomitant]
     Active Substance: METOCLOPRAMIDE
     Indication: NAUSEA
     Dosage: 28 IU (INTERNATIONAL UNIT)
     Route: 048
     Dates: start: 20151019
  28. ONDANSETRON [Concomitant]
     Active Substance: ONDANSETRON
     Indication: PROPHYLAXIS
     Dosage: 60 MILLIGRAM
     Route: 065
  29. GLYCOPYRROLATEATE BROMIDE INDACETEROL MALEATE [Concomitant]
     Indication: CHRONIC OBSTRUCTIVE PULMONARY DISEASE
     Dosage: 85/43 UG
     Route: 055
     Dates: start: 201510
  30. ASCORBIC ACID. [Concomitant]
     Active Substance: ASCORBIC ACID
     Indication: ASTHENIA
     Dosage: 1 PILL
     Route: 048
     Dates: start: 20151210
  31. BIOTIN [Concomitant]
     Active Substance: BIOTIN
     Indication: ASTHENIA
     Dosage: 1 PILL
     Route: 048
     Dates: start: 20151210
  32. PYRIDOXINE [Concomitant]
     Active Substance: PYRIDOXINE
     Indication: ASTHENIA
     Dosage: 1 PILL
     Route: 048
     Dates: start: 20151210
  33. SALMETEROL/PROPIONATE [Concomitant]
     Indication: CHRONIC OBSTRUCTIVE PULMONARY DISEASE
     Route: 055
     Dates: start: 201603

REACTIONS (3)
  - Pleural effusion [Recovered/Resolved]
  - Non-small cell lung cancer [Recovered/Resolved]
  - Non-small cell lung cancer [Fatal]

NARRATIVE: CASE EVENT DATE: 20160309
